FAERS Safety Report 15659107 (Version 1)
Quarter: 2018Q4

REPORT INFORMATION
  Report Type: Spontaneous
  Country: FR (occurrence: FR)
  Receive Date: 20181127
  Receipt Date: 20181127
  Transmission Date: 20190205
  Serious: Yes (Hospitalization)
  Sender: FDA-Public Use
  Company Number: FR-SA-2018SA318803

PATIENT
  Age: 3 Year
  Sex: Female
  Weight: 12.3 kg

DRUGS (8)
  1. AUGMENTIN [Suspect]
     Active Substance: AMOXICILLIN\CLAVULANATE POTASSIUM
     Indication: NASOPHARYNGITIS
     Dosage: 1 UNK, QD
     Route: 048
     Dates: start: 20180409, end: 20180411
  2. TEICOPLANIN [Suspect]
     Active Substance: TEICOPLANIN
     Indication: PNEUMONIA
     Dosage: 70 MG, QD
     Route: 042
     Dates: start: 20180501, end: 20180502
  3. LOVENOX [Suspect]
     Active Substance: ENOXAPARIN SODIUM
     Indication: THROMBOSIS PROPHYLAXIS
     Dosage: 1000 IU, QD
     Route: 058
     Dates: start: 20180411, end: 20180501
  4. AMIKACIN. [Suspect]
     Active Substance: AMIKACIN
     Indication: PNEUMONIA
     Dosage: 184.5 MG, QD
     Route: 042
     Dates: start: 20180411, end: 20180412
  5. DOLIPRANE [Concomitant]
     Active Substance: ACETAMINOPHEN
     Dosage: UNK
  6. AMOXICILLIN (SALT NOT SPECIFIED) [Suspect]
     Active Substance: AMOXICILLIN
     Indication: PNEUMONIA
     Dosage: 1500 MG, QD
     Route: 048
     Dates: start: 20180502, end: 20180503
  7. VANCOMYCINE SANDOZ [Suspect]
     Active Substance: VANCOMYCIN
     Indication: PNEUMONIA
     Dosage: 500 MG, QD
     Route: 042
     Dates: start: 20180420, end: 20180430
  8. CEFOTAXIME SODIUM [Suspect]
     Active Substance: CEFOTAXIME SODIUM
     Indication: PNEUMONIA
     Dosage: 2400 MG, QD
     Route: 042
     Dates: start: 20180411, end: 20180502

REACTIONS (4)
  - Lymphadenitis [Recovered/Resolved]
  - Rash maculo-papular [Recovered/Resolved]
  - Rash generalised [Recovered/Resolved]
  - Lymphadenopathy [Recovered/Resolved]

NARRATIVE: CASE EVENT DATE: 20180503
